FAERS Safety Report 21045645 (Version 1)
Quarter: 2022Q3

REPORT INFORMATION
  Report Type: Spontaneous
  Country: JP (occurrence: JP)
  Receive Date: 20220706
  Receipt Date: 20220706
  Transmission Date: 20221027
  Serious: Yes (Hospitalization, Other)
  Sender: FDA-Public Use
  Company Number: JP-BAYER-2022A032729

PATIENT
  Age: 88 Year
  Sex: Female
  Weight: 62.1 kg

DRUGS (11)
  1. RIVAROXABAN [Suspect]
     Active Substance: RIVAROXABAN
     Indication: Embolic stroke
     Dosage: 10 MG
     Route: 048
     Dates: start: 20210911, end: 20210917
  2. RIVAROXABAN [Suspect]
     Active Substance: RIVAROXABAN
     Indication: Atrial fibrillation
     Route: 048
  3. RIVAROXABAN [Suspect]
     Active Substance: RIVAROXABAN
     Dosage: 15 MG
     Route: 048
     Dates: start: 20211127, end: 20211213
  4. RIVAROXABAN [Suspect]
     Active Substance: RIVAROXABAN
     Route: 048
  5. NIFEDIPINE [Concomitant]
     Active Substance: NIFEDIPINE
  6. WARFARIN [Concomitant]
     Active Substance: WARFARIN
     Indication: Atrial fibrillation
     Dosage: 4 MG
     Route: 048
  7. WARFARIN [Concomitant]
     Active Substance: WARFARIN
     Indication: Atrial fibrillation
     Dosage: 2 MG
     Route: 048
  8. WARFARIN [Concomitant]
     Active Substance: WARFARIN
     Indication: Atrial fibrillation
     Dosage: 5 MG
     Route: 048
  9. WARFARIN [Concomitant]
     Active Substance: WARFARIN
     Indication: Atrial fibrillation
     Dosage: 2.25 MG
     Route: 048
  10. CANDESARTAN [Concomitant]
     Active Substance: CANDESARTAN
  11. PROPRANOLOL [Concomitant]
     Active Substance: PROPRANOLOL HYDROCHLORIDE

REACTIONS (7)
  - Embolic stroke [Recovered/Resolved with Sequelae]
  - Thrombophlebitis migrans [Recovered/Resolved with Sequelae]
  - Hemiplegia [Recovered/Resolved with Sequelae]
  - Fibrin D dimer increased [Recovered/Resolved with Sequelae]
  - Hemianopia homonymous [Unknown]
  - Hemiplegia [Unknown]
  - Therapeutic product effect incomplete [Recovered/Resolved with Sequelae]

NARRATIVE: CASE EVENT DATE: 20210917
